FAERS Safety Report 7356355-1 (Version None)
Quarter: 2011Q1

REPORT INFORMATION
  Report Type: 
  Country: None (occurrence: None)
  Receive Date: 20110316
  Receipt Date: 20110314
  Transmission Date: 20110831
  Serious: Yes (Other)
  Sender: FDA-Public Use
  Company Number: US-PFIZER INC-2011056257

PATIENT
  Sex: Male

DRUGS (3)
  1. GABAPENTIN [Suspect]
     Indication: OEDEMA PERIPHERAL
     Dosage: 400 MG, 1X/DAY
     Dates: start: 20100101, end: 20110301
  2. GABAPENTIN [Suspect]
     Indication: PARAESTHESIA
  3. GABAPENTIN [Suspect]
     Indication: MUSCULAR WEAKNESS

REACTIONS (6)
  - MUSCULAR WEAKNESS [None]
  - ASTHENIA [None]
  - SOMNOLENCE [None]
  - DIZZINESS [None]
  - MUSCULOSKELETAL STIFFNESS [None]
  - OEDEMA PERIPHERAL [None]
